FAERS Safety Report 24954909 (Version 2)
Quarter: 2025Q1

REPORT INFORMATION
  Report Type: Spontaneous
  Country: US (occurrence: US)
  Receive Date: 20250211
  Receipt Date: 20250218
  Transmission Date: 20250409
  Serious: No
  Sender: BRISTOL-MYERS SQUIBB COMPANY
  Company Number: US-BRISTOL-MYERS SQUIBB COMPANY-2023-051161

PATIENT
  Age: 79 Year
  Sex: Female
  Weight: 61.69 kg

DRUGS (9)
  1. ELIQUIS [Suspect]
     Active Substance: APIXABAN
     Indication: Pulmonary embolism
     Dosage: ADDITIONAL INFORMATION FOR OTHER MEDICINES ELIQUIS: STARTED TAKING WHILE IN THE HOSPITAL.
     Route: 048
     Dates: start: 202301
  2. VYNDAMAX [Suspect]
     Active Substance: TAFAMIDIS
     Indication: Amyloidosis
     Route: 048
  3. VYNDAMAX [Suspect]
     Active Substance: TAFAMIDIS
  4. GABAPENTIN [Concomitant]
     Active Substance: GABAPENTIN
     Indication: Rheumatoid arthritis
  5. CANDESARTAN [Concomitant]
     Active Substance: CANDESARTAN
     Indication: Cardiac disorder
     Dosage: ADDITIONAL INFORMATION FOR OTHER MEDICINES CANDESARTAN: WAS ON IT FOR MONTHS BEFORE HER LAST HOSPITA
     Route: 048
  6. FARXIGA [Concomitant]
     Active Substance: DAPAGLIFLOZIN PROPANEDIOL
     Indication: Product used for unknown indication
  7. SPIRONOLACTONE [Concomitant]
     Active Substance: SPIRONOLACTONE
     Indication: Renal disorder
     Dosage: ADDITIONAL INFORMATION FOR OTHER MEDICINES SPIRONOLACTONE: STARTED TAKING AFTER HER 3RDHOSPITALIZATI
     Route: 048
  8. METOPROLOL SUCCINATE [Concomitant]
     Active Substance: METOPROLOL SUCCINATE
     Indication: Cardiac disorder
     Dosage: ADDITIONAL INFORMATION FOR OTHER MEDICINES METOPROLOL SUCCINATE XL: HAS BEEN ON THIS A LITTLE LONGER
     Route: 048
  9. FUROSEMIDE [Concomitant]
     Active Substance: FUROSEMIDE
     Indication: Product used for unknown indication

REACTIONS (7)
  - Product use issue [Unknown]
  - Respiratory symptom [Unknown]
  - Dizziness [Unknown]
  - Thinking abnormal [Unknown]
  - Abdominal discomfort [Unknown]
  - Gingival bleeding [Unknown]
  - Illness [Unknown]
